FAERS Safety Report 25914103 (Version 1)
Quarter: 2025Q4

REPORT INFORMATION
  Report Type: Spontaneous
  Country: CH (occurrence: CH)
  Receive Date: 20251013
  Receipt Date: 20251013
  Transmission Date: 20260118
  Serious: Yes (Hospitalization, Other)
  Sender: PFIZER
  Company Number: None

PATIENT
  Age: 18 Year
  Sex: Female

DRUGS (15)
  1. ALDACTONE [Suspect]
     Active Substance: SPIRONOLACTONE
     Dosage: 250 MG, SINGLE
     Dates: start: 20250921, end: 20250921
  2. CLARITHROMYCIN [Interacting]
     Active Substance: CLARITHROMYCIN
     Dosage: 3500 MG, SINGLE
     Dates: start: 20250921, end: 20250921
  3. XARELTO [Interacting]
     Active Substance: RIVAROXABAN
     Dosage: 260 MG, SINGLE
     Dates: start: 20250921, end: 20250921
  4. XANAX [Interacting]
     Active Substance: ALPRAZOLAM
     Dosage: UNK
     Dates: end: 20250921
  5. XANAX [Interacting]
     Active Substance: ALPRAZOLAM
     Dosage: 5 MG, SINGLE
     Dates: start: 20250921, end: 20250921
  6. PANTOPRAZOLE [Suspect]
     Active Substance: PANTOPRAZOLE
     Dosage: 300 MG, SINGLE
     Dates: start: 20250921, end: 20250921
  7. ERDOSTEINE [Suspect]
     Active Substance: ERDOSTEINE
     Dosage: 3 G, SINGLE
     Dates: start: 20250921, end: 20250921
  8. DAFALGAN [Suspect]
     Active Substance: ACETAMINOPHEN
     Dosage: 8 G, SINGLE
     Dates: start: 20250921, end: 20250921
  9. FLUOXETINE [Interacting]
     Active Substance: FLUOXETINE HYDROCHLORIDE
     Dosage: 200 MG, SINGLE
     Dates: start: 20250921, end: 20250921
  10. FLUOXETINE [Interacting]
     Active Substance: FLUOXETINE HYDROCHLORIDE
     Dosage: 20 MG, 1X/DAY (MORNING)
     Dates: end: 20250921
  11. KETOROLAC TROMETHAMINE [Suspect]
     Active Substance: KETOROLAC TROMETHAMINE
     Dosage: 100 MG, SINGLE
     Dates: start: 20250921, end: 20250921
  12. PREDNISONE [Suspect]
     Active Substance: PREDNISONE
     Dosage: 1 G, SINGLE
     Dates: start: 20250921, end: 20250921
  13. NITROFURANTOIN [Suspect]
     Active Substance: NITROFURANTOIN
     Dosage: 1 G, SINGLE
     Dates: start: 20250921, end: 20250921
  14. QUETIAPINE [Concomitant]
     Active Substance: QUETIAPINE
     Dosage: 25 MG, 1X/DAY (EVENING)
  15. QUETIAPINE [Concomitant]
     Active Substance: QUETIAPINE
     Dosage: 50 MG, 1X/DAY (EVENING)

REACTIONS (7)
  - Intentional overdose [Recovered/Resolved]
  - Coagulation factor X level abnormal [Recovered/Resolved]
  - Prothrombin time abnormal [Recovered/Resolved]
  - Activated partial thromboplastin time prolonged [Recovered/Resolved]
  - International normalised ratio abnormal [Recovered/Resolved]
  - Altered state of consciousness [Recovered/Resolved]
  - Drug interaction [Recovered/Resolved]

NARRATIVE: CASE EVENT DATE: 20250921
